FAERS Safety Report 20562704 (Version 4)
Quarter: 2022Q2

REPORT INFORMATION
  Report Type: Spontaneous
  Country: FR (occurrence: FR)
  Receive Date: 20220307
  Receipt Date: 20220524
  Transmission Date: 20220721
  Serious: Yes (Other)
  Sender: FDA-Public Use
  Company Number: FR-UCBSA-2022011529

PATIENT
  Age: 5 Year
  Sex: Female
  Weight: 20 kg

DRUGS (6)
  1. KEPPRA [Suspect]
     Active Substance: LEVETIRACETAM
     Indication: Epilepsy
     Dosage: 1 MILLILITER, 2X/DAY (BID)
     Route: 048
     Dates: start: 20220215
  2. KEPPRA [Suspect]
     Active Substance: LEVETIRACETAM
     Dosage: 2 MILLILITER, 2X/DAY (BID)
     Route: 048
  3. KEPPRA [Suspect]
     Active Substance: LEVETIRACETAM
     Dosage: 3 MILLILITER, 2X/DAY (BID)
     Route: 048
  4. KEPPRA [Suspect]
     Active Substance: LEVETIRACETAM
     Dosage: 2 MILLILITER, 2X/DAY (BID)
     Route: 048
  5. KEPPRA [Suspect]
     Active Substance: LEVETIRACETAM
     Dosage: 1 MILLILITER, 2X/DAY (BID)
     Route: 048
  6. ACETAMINOPHEN [Concomitant]
     Active Substance: ACETAMINOPHEN
     Indication: Pain

REACTIONS (16)
  - Hypoglycaemic seizure [Recovered/Resolved]
  - Epilepsy [Recovered/Resolved]
  - Petit mal epilepsy [Recovered/Resolved]
  - Hypothermia [Recovered/Resolved]
  - Somnolence [Recovered/Resolved]
  - Fatigue [Recovered/Resolved]
  - Diarrhoea [Recovered/Resolved]
  - Sleep disorder [Recovered/Resolved]
  - Pallor [Recovered/Resolved]
  - Hypoglycaemia [Recovered/Resolved]
  - Abnormal behaviour [Recovered/Resolved]
  - Asthenia [Recovered/Resolved]
  - Pain [Recovered/Resolved]
  - Drug intolerance [Unknown]
  - Abdominal pain upper [Recovered/Resolved]
  - Nausea [Recovered/Resolved]

NARRATIVE: CASE EVENT DATE: 20220219
